FAERS Safety Report 8164392-2 (Version None)
Quarter: 2012Q1

REPORT INFORMATION
  Report Type: 
  Country: None (occurrence: None)
  Receive Date: 20120224
  Receipt Date: 20120217
  Transmission Date: 20120608
  Serious: Yes (Hospitalization)
  Sender: FDA-Public Use
  Company Number: BR-ASTRAZENECA-2009SE23313

PATIENT
  Age: 58 Year
  Sex: Female

DRUGS (3)
  1. ANTIBIOTICS [Concomitant]
     Route: 048
  2. NEXIUM [Suspect]
     Indication: GASTRITIS ATROPHIC
     Route: 048
     Dates: start: 20070101, end: 20120201
  3. ADALAT [Concomitant]
     Indication: HYPERTENSION
     Route: 048
     Dates: start: 20060101

REACTIONS (2)
  - CORONARY ARTERY STENOSIS [None]
  - BLOOD CHOLESTEROL INCREASED [None]
